FAERS Safety Report 10085679 (Version 1)
Quarter: 2014Q2

REPORT INFORMATION
  Report Type: Spontaneous
  Country: US (occurrence: None)
  Receive Date: 20140416
  Receipt Date: 20140416
  Transmission Date: 20141212
  Serious: Yes (Hospitalization)
  Sender: FDA-Public Use
  Company Number: US-TORRENT-00000742

PATIENT
  Sex: Female

DRUGS (1)
  1. DONEPEZIL HCL [Suspect]
     Indication: DEMENTIA ALZHEIMER^S TYPE

REACTIONS (6)
  - Gastrointestinal disorder [None]
  - Device issue [None]
  - Amnesia [None]
  - Fall [None]
  - Incontinence [None]
  - Product quality issue [None]
